FAERS Safety Report 23825494 (Version 1)
Quarter: 2024Q2

REPORT INFORMATION
  Report Type: Spontaneous
  Country: CN (occurrence: CN)
  Receive Date: 20240507
  Receipt Date: 20240507
  Transmission Date: 20240716
  Serious: Yes (Life-Threatening, Hospitalization)
  Sender: FDA-Public Use
  Company Number: CN-BAYER-2024A067162

PATIENT
  Age: 76 Year
  Sex: Male
  Weight: 54.6 kg

DRUGS (2)
  1. ULTRAVIST [Suspect]
     Active Substance: IOPROMIDE
     Indication: Chronic obstructive pulmonary disease
     Dosage: 100 ML, ONCE
     Route: 042
     Dates: start: 20240501, end: 20240501
  2. ULTRAVIST [Suspect]
     Active Substance: IOPROMIDE
     Indication: Pneumonia

REACTIONS (4)
  - Laryngeal oedema [Recovering/Resolving]
  - Blood pressure increased [Recovered/Resolved]
  - Sensation of foreign body [Recovering/Resolving]
  - Respiratory rate increased [Not Recovered/Not Resolved]

NARRATIVE: CASE EVENT DATE: 20240501
